FAERS Safety Report 5502607-7 (Version None)
Quarter: 2007Q4

REPORT INFORMATION
  Report Type: 
  Country: None (occurrence: None)
  Receive Date: 20071031
  Receipt Date: 20071019
  Transmission Date: 20080405
  Serious: Yes (Disabling, Other)
  Sender: FDA-Public Use
  Company Number: US-JNJFOC-20071000700

PATIENT
  Sex: Male
  Weight: 74.84 kg

DRUGS (3)
  1. REMICADE [Suspect]
  2. REMICADE [Suspect]
     Indication: COLITIS ULCERATIVE
  3. 6 MP [Concomitant]
     Indication: COLITIS ULCERATIVE

REACTIONS (2)
  - DEMYELINATION [None]
  - NEUROPATHY PERIPHERAL [None]
